FAERS Safety Report 17975103 (Version 1)
Quarter: 2020Q3

REPORT INFORMATION
  Report Type: Spontaneous
  Country: US (occurrence: US)
  Receive Date: 20200702
  Receipt Date: 20200702
  Transmission Date: 20201103
  Serious: Yes (Other)
  Sender: FDA-Public Use
  Company Number: US-PFIZER INC-2020253809

PATIENT
  Sex: Female

DRUGS (7)
  1. PENTOBARBITAL. [Concomitant]
     Active Substance: PENTOBARBITAL
     Dosage: UNK
  2. DEXMEDETOMIDINE HYDROCHLORIDE. [Suspect]
     Active Substance: DEXMEDETOMIDINE HYDROCHLORIDE
     Dosage: 1.5 UG/KG (1.5 MCG/KG/H MAXIMUM DOSE, INFUSIONS)
  3. NALOXONE [Concomitant]
     Active Substance: NALOXONE
     Indication: PRURITUS
     Dosage: UNK (LOW?DOSE, INFUSIONS)
  4. HYDROMORPHONE HYDROCHLORIDE. [Suspect]
     Active Substance: HYDROMORPHONE HYDROCHLORIDE
     Dosage: 0.03 MG/KG/H (MAXIMUM DOSE, INFUSIONS)
  5. CISATRACURIUM BESILATE [Suspect]
     Active Substance: CISATRACURIUM BESYLATE
     Dosage: 2 UG/KG (MAXIMUM DOSE 2MCG/KG/MIN, INFUSIONS)
  6. MIDAZOLAM. [Suspect]
     Active Substance: MIDAZOLAM
     Dosage: 0.21 MG/KG (MAXIMUM DOSE 0.21 MG/KG/H, INFUSIONS)
  7. KETAMINE [Concomitant]
     Active Substance: KETAMINE
     Dosage: UNK

REACTIONS (1)
  - Drug withdrawal syndrome [Recovered/Resolved]
